FAERS Safety Report 5561565-X (Version None)
Quarter: 2007Q4

REPORT INFORMATION
  Report Type: 
  Country: None (occurrence: None)
  Receive Date: 20071215
  Receipt Date: 20071017
  Transmission Date: 20080405
  Serious: No
  Sender: FDA-Public Use
  Company Number: US-AMGEN-KDL247389

PATIENT
  Sex: Male

DRUGS (6)
  1. ENBREL [Suspect]
     Indication: RHEUMATOID ARTHRITIS
     Route: 058
     Dates: start: 20050801
  2. TREXALL [Concomitant]
     Dates: start: 20041101
  3. FOLIC ACID [Concomitant]
  4. PREDNISONE [Concomitant]
  5. ADVIL LIQUI-GELS [Concomitant]
  6. NAPROSYN [Concomitant]

REACTIONS (1)
  - TUBERCULOSIS SKIN TEST POSITIVE [None]
